FAERS Safety Report 6027197-4 (Version None)
Quarter: 2008Q4

REPORT INFORMATION
  Report Type: 
  Country: None (occurrence: None)
  Receive Date: 20081222
  Receipt Date: 20081126
  Transmission Date: 20090506
  Serious: No
  Sender: FDA-Public Use
  Company Number: US-WYE-H07032908

PATIENT
  Age: 38 Year
  Sex: Female
  Weight: 88.53 kg

DRUGS (3)
  1. PRISTIQ [Suspect]
     Indication: DEPRESSION
     Dosage: 50 MG 1X PER 1 DAY, ORAL
     Route: 048
     Dates: start: 20081120
  2. KLONOPIN [Concomitant]
  3. METOPROLOL TARTRATE [Concomitant]

REACTIONS (8)
  - CRYING [None]
  - FEELING ABNORMAL [None]
  - HEADACHE [None]
  - HYPERHIDROSIS [None]
  - HYPOAESTHESIA [None]
  - PANIC ATTACK [None]
  - TREMOR [None]
  - VERTIGO [None]
